FAERS Safety Report 9227486 (Version 2)
Quarter: 2014Q2

REPORT INFORMATION
  Report Type: Spontaneous
  Country: MX (occurrence: MX)
  Receive Date: 20130412
  Receipt Date: 20140603
  Transmission Date: 20141212
  Serious: Yes (Death, Hospitalization, Other)
  Sender: FDA-Public Use
  Company Number: PHHY2013MX035379

PATIENT
  Sex: Male

DRUGS (3)
  1. ONBREZ [Suspect]
     Indication: BRONCHITIS CHRONIC
     Dosage: 300 UG, DAILY
     Route: 055
     Dates: start: 201203, end: 20130310
  2. ONBREZ [Suspect]
     Indication: OFF LABEL USE
  3. MINITRAN [Concomitant]
     Dosage: 1 DF, DAILY

REACTIONS (7)
  - Cardiac arrest [Fatal]
  - Respiratory failure [Fatal]
  - Dyspnoea [Fatal]
  - Acute myocardial infarction [Fatal]
  - Acute pulmonary oedema [Fatal]
  - Hip fracture [Recovered/Resolved]
  - Fall [Recovered/Resolved]
